FAERS Safety Report 14312397 (Version 4)
Quarter: 2018Q2

REPORT INFORMATION
  Report Type: Spontaneous
  Country: BE (occurrence: BE)
  Receive Date: 20171221
  Receipt Date: 20180425
  Transmission Date: 20180711
  Serious: Yes (Death, Life-Threatening, Disabling, Congenital Anomaly, Other)
  Sender: FDA-Public Use
  Company Number: BE-ALLERGAN-1772916US

PATIENT
  Sex: Male
  Weight: .3 kg

DRUGS (15)
  1. ESCITALOPRAM OXALATE - BP [Suspect]
     Active Substance: ESCITALOPRAM OXALATE
     Indication: EXPOSURE DURING PREGNANCY
     Dosage: 10 MG, UNK
     Route: 064
  2. MEPOLIZUMAB [Suspect]
     Active Substance: MEPOLIZUMAB
     Indication: MATERNAL EXPOSURE TIMING UNSPECIFIED
     Dosage: 100 MG, UNK
     Route: 064
     Dates: start: 20170112
  3. FLIXOTIDE [Suspect]
     Active Substance: FLUTICASONE PROPIONATE
     Indication: MATERNAL EXPOSURE TIMING UNSPECIFIED
     Dosage: 250 UG, BID
     Route: 064
  4. AVAMYS [Suspect]
     Active Substance: FLUTICASONE FUROATE
     Indication: MATERNAL EXPOSURE TIMING UNSPECIFIED
     Dosage: UNK, BID
     Route: 064
  5. XANTHIUM (THEOPHYLLINE) [Suspect]
     Active Substance: THEOPHYLLINE
     Indication: MATERNAL EXPOSURE TIMING UNSPECIFIED
     Dosage: 200 MG, QD
     Route: 064
  6. SERETIDE [Suspect]
     Active Substance: FLUTICASONE PROPIONATE\SALMETEROL XINAFOATE
     Indication: MATERNAL EXPOSURE TIMING UNSPECIFIED
     Dosage: UNK
     Route: 064
  7. PANTOPRAZOLE SODIUM SESQUIHYDRATE [Suspect]
     Active Substance: PANTOPRAZOLE SODIUM
     Indication: EXPOSURE DURING PREGNANCY
     Dosage: UNK
     Route: 064
  8. D-CURE [Suspect]
     Active Substance: CHOLECALCIFEROL
     Indication: MATERNAL EXPOSURE TIMING UNSPECIFIED
     Dosage: 25 KIU, UNK
     Route: 064
  9. XYZALL [Suspect]
     Active Substance: LEVOCETIRIZINE DIHYDROCHLORIDE
     Indication: EXPOSURE DURING PREGNANCY
     Dosage: 5 MG, QD
     Route: 064
  10. LEVOCETIRIZINE [Suspect]
     Active Substance: LEVOCETIRIZINE
     Indication: MATERNAL EXPOSURE TIMING UNSPECIFIED
     Dosage: 5 MG, QD
     Route: 064
  11. THEOPHYLLINE [Suspect]
     Active Substance: THEOPHYLLINE ANHYDROUS
     Indication: EXPOSURE DURING PREGNANCY
     Route: 064
  12. PANTOMED (PANTOPRAZOLE SODIUM SESQUIHYDRATE) [Suspect]
     Active Substance: PANTOPRAZOLE SODIUM
     Indication: MATERNAL EXPOSURE TIMING UNSPECIFIED
     Dosage: UNK
     Route: 064
  13. VILANTEROL TRIFENATATE [Suspect]
     Active Substance: VILANTEROL TRIFENATATE
     Indication: EXPOSURE DURING PREGNANCY
     Dosage: 1 DF, QD
     Route: 064
  14. FLUTICASONE FUROATE [Suspect]
     Active Substance: FLUTICASONE FUROATE
     Indication: EXPOSURE DURING PREGNANCY
     Dosage: UNK UNK, QD
     Route: 064
  15. VENTOLIN [Suspect]
     Active Substance: ALBUTEROL SULFATE
     Indication: MATERNAL EXPOSURE TIMING UNSPECIFIED
     Dosage: 100 UG, UNK
     Route: 064

REACTIONS (4)
  - Trisomy 18 [Fatal]
  - Premature baby [None]
  - Foetal exposure during pregnancy [Fatal]
  - Foetal malformation [Fatal]

NARRATIVE: CASE EVENT DATE: 20170808
